FAERS Safety Report 20722789 (Version 2)
Quarter: 2022Q3

REPORT INFORMATION
  Report Type: Spontaneous
  Country: US (occurrence: US)
  Receive Date: 20220419
  Receipt Date: 20220720
  Transmission Date: 20221027
  Serious: Yes (Hospitalization, Other)
  Sender: FDA-Public Use
  Company Number: US-ENDO PHARMACEUTICALS INC-2022-002475

PATIENT
  Age: 28 Year
  Sex: Female

DRUGS (1)
  1. CLONIDINE HYDROCHLORIDE [Suspect]
     Active Substance: CLONIDINE HYDROCHLORIDE
     Indication: Attention deficit hyperactivity disorder
     Dosage: 30 DF, UNKNOWN
     Route: 048

REACTIONS (4)
  - Suicide attempt [Recovered/Resolved]
  - Arteriospasm coronary [Unknown]
  - Left ventricular failure [Recovering/Resolving]
  - Intentional overdose [Recovered/Resolved]
